FAERS Safety Report 9082244 (Version 1)
Quarter: 2013Q1

REPORT INFORMATION
  Report Type: Report from Study
  Country: US (occurrence: US)
  Receive Date: 20130131
  Receipt Date: 20130131
  Transmission Date: 20140127
  Serious: No
  Sender: FDA-Public Use
  Company Number: US-ABBOTT-12P-163-0990272-00

PATIENT
  Age: 59 Year
  Sex: Male

DRUGS (5)
  1. HUMIRA [Suspect]
     Indication: CROHN^S DISEASE
     Dates: start: 201207
  2. REQUIP [Concomitant]
     Indication: RESTLESS LEGS SYNDROME
  3. KLONOPIN [Concomitant]
     Indication: RESTLESS LEGS SYNDROME
  4. PRILOSEC [Concomitant]
     Indication: PRODUCT USED FOR UNKNOWN INDICATION
     Dosage: EVERY OTHER DAY OR EVERY THIRD DAY
  5. REPLACEMENT DRUG FOR MIDRIN [Concomitant]
     Indication: MIGRAINE

REACTIONS (2)
  - Incorrect dose administered by device [Unknown]
  - Injection site pain [Unknown]
